FAERS Safety Report 8423208-7 (Version None)
Quarter: 2012Q2

REPORT INFORMATION
  Report Type: 
  Country: None (occurrence: None)
  Receive Date: 20120608
  Receipt Date: 20120604
  Transmission Date: 20120825
  Serious: Yes (Hospitalization, Other)
  Sender: FDA-Public Use
  Company Number: JP-TEVA-330662USA

PATIENT
  Sex: Female
  Weight: 45 kg

DRUGS (9)
  1. LOXOPROFEN SODIUM [Concomitant]
  2. GRANISETRON [Concomitant]
  3. DEXAMETHASONE [Concomitant]
  4. TREANDA [Suspect]
     Indication: B-CELL LYMPHOMA
     Dosage: 130 MILLIGRAM;
     Route: 042
     Dates: start: 20120306
  5. SULFAMETHOXAZOLE AND TRIMETHOPRIM [Suspect]
     Dates: start: 20120306
  6. ACYCLOVIR [Suspect]
     Route: 048
     Dates: start: 20110712
  7. ACYCLOVIR [Suspect]
     Route: 048
     Dates: start: 20120306
  8. SULFAMETHOXAZOLE AND TRIMETHOPRIM [Suspect]
     Dates: start: 20110712
  9. FAMOTIDINE [Concomitant]

REACTIONS (1)
  - STEVENS-JOHNSON SYNDROME [None]
